FAERS Safety Report 8913074 (Version 1)
Quarter: 2012Q4

REPORT INFORMATION
  Report Type: Spontaneous
  Country: FR (occurrence: None)
  Receive Date: 20121113
  Receipt Date: 20121113
  Transmission Date: 20130627
  Serious: Yes (Hospitalization)
  Sender: FDA-Public Use
  Company Number: DSA_60819_2012

PATIENT
  Age: 64 Year
  Sex: Female

DRUGS (4)
  1. FLAGYL [Suspect]
     Indication: PRODUCT USED FOR UNKNOWN INDICATION
     Dosage: df
     Dates: start: 20120922, end: 20121002
  2. IMUREL [Suspect]
     Indication: PRODUCT USED FOR UNKNOWN INDICATION
     Dosage: df
     Dates: end: 20121004
  3. CYMEVAN [Suspect]
     Indication: PRODUCT USED FOR UNKNOWN INDICATION
     Dosage: df
     Dates: start: 20120924, end: 20121002
  4. CIFLOX [Suspect]
     Indication: PRODUCT USED FOR UNKNOWN INDICATION
     Dosage: df
     Dates: start: 20120922, end: 20121002

REACTIONS (1)
  - Agranulocytosis [None]
